FAERS Safety Report 9632113 (Version 1)
Quarter: 2013Q4

REPORT INFORMATION
  Report Type: Spontaneous
  Country: US (occurrence: US)
  Receive Date: 20131018
  Receipt Date: 20131018
  Transmission Date: 20140711
  Serious: No
  Sender: FDA-Public Use
  Company Number: US-PFIZER INC-2013295563

PATIENT
  Age: 12 Year
  Sex: Female
  Weight: 38.1 kg

DRUGS (5)
  1. GENOTROPIN MQ [Suspect]
     Indication: GROWTH HORMONE DEFICIENCY
     Dosage: 1.8 MG, 1X/DAY
     Dates: start: 201110
  2. GENOTROPIN MQ [Suspect]
  3. GENOTROPIN MQ [Suspect]
  4. GENOTROPIN MQ [Suspect]
  5. GENOTROPIN MQ [Suspect]

REACTIONS (2)
  - Skin burning sensation [Unknown]
  - Rash [Unknown]
